FAERS Safety Report 10909532 (Version 1)
Quarter: 2015Q1

REPORT INFORMATION
  Report Type: Spontaneous
  Country: US (occurrence: US)
  Receive Date: 20150312
  Receipt Date: 20150312
  Transmission Date: 20150721
  Serious: No
  Sender: FDA-Public Use
  Company Number: US-SA-2014SA058228

PATIENT
  Age: 84 Year
  Sex: Female

DRUGS (7)
  1. VITAMIN B12 [Concomitant]
     Active Substance: CYANOCOBALAMIN
     Indication: ASTHENIA
     Dosage: DOSE:5000 UNIT(S)
     Dates: start: 2013
  2. ZANTAC [Concomitant]
     Active Substance: RANITIDINE HYDROCHLORIDE
  3. VITAMIN D3 [Concomitant]
     Active Substance: CHOLECALCIFEROL
     Indication: TOOTH DISORDER
     Dosage: DOSE:1000 UNIT(S)
     Dates: start: 2011
  4. HYOSCYAMINE [Concomitant]
     Active Substance: HYOSCYAMINE
  5. NASACORT ALLERGY 24HR [Suspect]
     Active Substance: TRIAMCINOLONE ACETONIDE
     Indication: RHINORRHOEA
     Dosage: TWO TO THREE TIMES A DAY??PRODUCT STOPPED IN APRIL
     Route: 065
     Dates: end: 201404
  6. VITAMIN D3 [Concomitant]
     Active Substance: CHOLECALCIFEROL
     Indication: BONE DISORDER
     Dosage: DOSE:1000 UNIT(S)
     Dates: start: 2011
  7. BIOTIN [Concomitant]
     Active Substance: BIOTIN
     Indication: ALOPECIA

REACTIONS (1)
  - Drug ineffective [Unknown]
